FAERS Safety Report 5170541-0 (Version None)
Quarter: 2006Q4

REPORT INFORMATION
  Report Type: 
  Country: None (occurrence: None)
  Receive Date: 20061204
  Receipt Date: 20061122
  Transmission Date: 20070319
  Serious: Yes (Other)
  Sender: FDA-Public Use
  Company Number: ST-2006-009304

PATIENT
  Age: 74 Year
  Sex: Female
  Weight: 74.7 kg

DRUGS (5)
  1. OLMETEC [Suspect]
     Indication: ESSENTIAL HYPERTENSION
     Dosage: 10 MG QD PO
     Route: 048
     Dates: start: 20060411
  2. TANATRIL TANABE [Concomitant]
  3. LIPITOR [Concomitant]
  4. CYANOCOBALAMIN [Concomitant]
  5. BOHUTUSYOSAN [Concomitant]

REACTIONS (1)
  - CEREBRAL HAEMORRHAGE [None]
